FAERS Safety Report 23178971 (Version 11)
Quarter: 2024Q2

REPORT INFORMATION
  Report Type: Spontaneous
  Country: US (occurrence: US)
  Receive Date: 20231113
  Receipt Date: 20240520
  Transmission Date: 20240715
  Serious: Yes (Other)
  Sender: FDA-Public Use
  Company Number: US-PFIZER INC-202300361841

PATIENT
  Age: 49 Year
  Sex: Female
  Weight: 62.6 kg

DRUGS (2)
  1. PREMARIN [Suspect]
     Active Substance: ESTROGENS, CONJUGATED
     Indication: Hormone replacement therapy
     Dosage: 0.45 MG, 1X/DAY
     Route: 048
  2. PREMARIN [Suspect]
     Active Substance: ESTROGENS, CONJUGATED
     Indication: Menopausal symptoms

REACTIONS (8)
  - Hysterectomy [Unknown]
  - Weight increased [Unknown]
  - Speech disorder [Not Recovered/Not Resolved]
  - Hepatic steatosis [Unknown]
  - Stress [Unknown]
  - Illness [Unknown]
  - Frustration tolerance decreased [Unknown]
  - Product prescribing error [Unknown]

NARRATIVE: CASE EVENT DATE: 20100101
